FAERS Safety Report 21340445 (Version 1)
Quarter: 2022Q3

REPORT INFORMATION
  Report Type: Spontaneous
  Country: US (occurrence: None)
  Receive Date: 20220915
  Receipt Date: 20220915
  Transmission Date: 20221026
  Serious: Yes (Other)
  Sender: FDA-Public Use
  Company Number: None

PATIENT
  Sex: Female

DRUGS (7)
  1. XELJANZ XR [Suspect]
     Active Substance: TOFACITINIB CITRATE
     Indication: Ankylosing spondylitis
     Route: 048
     Dates: start: 20200109
  2. AVAPRO [Concomitant]
     Active Substance: IRBESARTAN
  3. FISH OI [Concomitant]
  4. SIMPONI [Concomitant]
     Active Substance: GOLIMUMAB
  5. SMARTJET [Concomitant]
  6. VITAMIN D CAP [Concomitant]
  7. ZOCOR TAB [Concomitant]

REACTIONS (1)
  - Cardiac operation [None]
